FAERS Safety Report 26186202 (Version 1)
Quarter: 2025Q4

REPORT INFORMATION
  Report Type: Spontaneous
  Country: US (occurrence: None)
  Receive Date: 20251221
  Receipt Date: 20251221
  Transmission Date: 20260117
  Serious: Yes (Hospitalization, Disabling)
  Sender: FDA-CTU
  Company Number: None

PATIENT
  Age: 28 Year
  Sex: Male
  Weight: 112.5 kg

DRUGS (3)
  1. DIVALPROEX SODIUM ER [Suspect]
     Active Substance: DIVALPROEX SODIUM
     Indication: Epilepsy
  2. LURASIDONE [Suspect]
     Active Substance: LURASIDONE
     Route: 048
  3. FOLIC ACID [Suspect]
     Active Substance: FOLIC ACID

REACTIONS (5)
  - Diarrhoea [None]
  - Joint stiffness [None]
  - Migraine [None]
  - Mobility decreased [None]
  - Unevaluable event [None]

NARRATIVE: CASE EVENT DATE: 20210719
